FAERS Safety Report 6104378-2 (Version None)
Quarter: 2009Q1

REPORT INFORMATION
  Report Type: 
  Country: None (occurrence: None)
  Receive Date: 20090302
  Receipt Date: 20090216
  Transmission Date: 20090719
  Serious: Yes (Hospitalization, Disabling)
  Sender: FDA-Public Use
  Company Number: 183356

PATIENT
  Age: 36 Year
  Sex: Male

DRUGS (8)
  1. ETOPOSIDE [Suspect]
     Indication: PRECURSOR T-LYMPHOBLASTIC LYMPHOMA/LEUKAEMIA
     Dates: start: 19981204, end: 19990101
  2. CYTARABINE [Suspect]
     Indication: PRECURSOR T-LYMPHOBLASTIC LYMPHOMA/LEUKAEMIA
  3. CYTARABINE [Suspect]
     Indication: PRECURSOR T-LYMPHOBLASTIC LYMPHOMA/LEUKAEMIA
     Dates: start: 19981204, end: 19990101
  4. VINCRISTINE SULFATE [Suspect]
     Indication: PRECURSOR T-LYMPHOBLASTIC LYMPHOMA/LEUKAEMIA
     Dates: start: 19980811, end: 19981204
  5. METHOTREXATE [Suspect]
     Indication: PRECURSOR T-LYMPHOBLASTIC LYMPHOMA/LEUKAEMIA
     Dates: start: 19980101, end: 19990101
  6. DOXORUBICIN HCL [Suspect]
     Indication: PRECURSOR T-LYMPHOBLASTIC LYMPHOMA/LEUKAEMIA
     Dates: start: 19980811, end: 19991204
  7. CYCLOPHOSPHAMIDE [Suspect]
     Indication: PRECURSOR T-LYMPHOBLASTIC LYMPHOMA/LEUKAEMIA
     Dates: start: 19980811, end: 19981204
  8. (HOLOXAN) [Suspect]
     Indication: PRECURSOR T-LYMPHOBLASTIC LYMPHOMA/LEUKAEMIA
     Dates: start: 19981204, end: 19980101

REACTIONS (9)
  - BONE MARROW FAILURE [None]
  - DISEASE RECURRENCE [None]
  - GASTROINTESTINAL NECROSIS [None]
  - HEADACHE [None]
  - IMMUNE SYSTEM DISORDER [None]
  - INFECTION [None]
  - OSTEONECROSIS [None]
  - PYREXIA [None]
  - STEM CELL TRANSPLANT [None]
